FAERS Safety Report 19572727 (Version 1)
Quarter: 2021Q3

REPORT INFORMATION
  Report Type: Spontaneous
  Country: US (occurrence: US)
  Receive Date: 20210716
  Receipt Date: 20210716
  Transmission Date: 20211014
  Serious: Yes (Hospitalization)
  Sender: FDA-Public Use
  Company Number: US-PFIZER INC-8-92350-006F

PATIENT
  Age: 71 Year
  Sex: Female
  Weight: 61.2 kg

DRUGS (8)
  1. PROMETHAZINE/MEPERIDINE [Concomitant]
     Indication: PAIN
     Dosage: PROMETHAZINE (25 MG INTRAMUSCULARLY) MEPERIDINE (75 MG INTRAMUSCULARLY)
     Route: 030
  2. TEMAZEPAM. [Concomitant]
     Active Substance: TEMAZEPAM
     Indication: PAIN
     Dosage: 15 MG EVERY NIGHT
     Route: 048
  3. CYCLOBENZAPRINE. [Concomitant]
     Active Substance: CYCLOBENZAPRINE
     Indication: PAIN
     Dosage: 10 MG, 3X/DAY
     Route: 048
  4. LIDOCAINE. [Concomitant]
     Active Substance: LIDOCAINE
     Indication: PAIN
     Dosage: 50 MG
     Route: 037
  5. BACLOFEN. [Concomitant]
     Active Substance: BACLOFEN
     Indication: PAIN
     Dosage: 10 MG, 4X/DAY
     Route: 048
  6. MORPHINE SULFATE. [Suspect]
     Active Substance: MORPHINE SULFATE
     Indication: PAIN
     Dosage: 250 UG, DAILY
     Route: 037
     Dates: start: 19921203, end: 19921203
  7. MORPHINE SULFATE. [Suspect]
     Active Substance: MORPHINE SULFATE
     Dosage: UNK, DAILY
     Route: 065
     Dates: start: 19921205, end: 19921205
  8. ACETAMINOPHEN WITH CODEINE ELIXER [Concomitant]
     Indication: PAIN
     Dosage: CODEINE (72 MG) WITH ACETAMINOPHEN (720 MG OF ELIXIR) ALTERNATED EVERY 4 H AS NEEDED

REACTIONS (1)
  - Psychotic disorder [Recovered/Resolved]

NARRATIVE: CASE EVENT DATE: 19921203
